FAERS Safety Report 5708376-X (Version None)
Quarter: 2008Q2

REPORT INFORMATION
  Report Type: 
  Country: None (occurrence: None)
  Receive Date: 20080417
  Receipt Date: 20080403
  Transmission Date: 20081010
  Serious: Yes (Disabling, Other)
  Sender: FDA-Public Use
  Company Number: JP-ASTRAZENECA-2008AP00526

PATIENT
  Age: 31120 Day
  Sex: Male
  Weight: 48 kg

DRUGS (13)
  1. SEROQUEL [Suspect]
     Indication: DEMENTIA
     Dosage: 50-200 MG AS SINGLE DOSE OR DIVIDED INTO TWO DOSES.
     Route: 048
     Dates: start: 20050905, end: 20070727
  2. SEROQUEL [Suspect]
     Route: 048
     Dates: start: 20071210, end: 20071212
  3. SEROQUEL [Suspect]
     Route: 048
     Dates: start: 20071213, end: 20080107
  4. LASIX [Concomitant]
     Indication: HYPERTENSION
     Route: 048
     Dates: start: 20020101
  5. DIOVAN [Concomitant]
     Indication: HYPERTENSION
     Route: 048
     Dates: start: 20020101
  6. WARFARIN SODIUM [Concomitant]
     Indication: CEREBRAL INFARCTION
     Route: 048
     Dates: start: 20070305
  7. ALLEGRA [Concomitant]
     Indication: PRURITUS
     Route: 048
     Dates: start: 20070301
  8. AMOBAN [Concomitant]
     Indication: DEMENTIA
     Route: 048
     Dates: start: 20050905
  9. RHYTHMY [Concomitant]
     Indication: DEMENTIA
     Route: 048
     Dates: start: 20050901
  10. ZYPREXA [Concomitant]
     Route: 048
     Dates: start: 20071120, end: 20071202
  11. ZYPREXA [Concomitant]
     Route: 048
     Dates: start: 20071203, end: 20071209
  12. ZYPREXA [Concomitant]
     Route: 048
     Dates: start: 20071210, end: 20071212
  13. YOKU-KAN-SAN [Concomitant]
     Indication: DEMENTIA
     Route: 048
     Dates: start: 20071227, end: 20080109

REACTIONS (2)
  - GLUCOSE URINE PRESENT [None]
  - HYPERGLYCAEMIA [None]
